FAERS Safety Report 16675926 (Version 2)
Quarter: 2019Q3

REPORT INFORMATION
  Report Type: Spontaneous
  Country: US (occurrence: US)
  Receive Date: 20190807
  Receipt Date: 20190925
  Transmission Date: 20191004
  Serious: No
  Sender: FDA-Public Use
  Company Number: US-JNJFOC-20190803007

PATIENT
  Age: 77 Year
  Sex: Female
  Weight: 94.89 kg

DRUGS (1)
  1. WOMENS ROGAINE UNSCENTED [Suspect]
     Active Substance: MINOXIDIL
     Indication: ALOPECIA
     Dosage: CAP FULL
     Route: 061
     Dates: start: 20190508

REACTIONS (6)
  - Application site pruritus [Not Recovered/Not Resolved]
  - Product storage error [Unknown]
  - Inappropriate schedule of product administration [Unknown]
  - Overdose [Unknown]
  - Hair colour changes [Not Recovered/Not Resolved]
  - Poor quality product administered [Unknown]

NARRATIVE: CASE EVENT DATE: 20190508
